FAERS Safety Report 23747345 (Version 2)
Quarter: 2024Q3

REPORT INFORMATION
  Report Type: Report from Study
  Country: US (occurrence: US)
  Receive Date: 20240416
  Receipt Date: 20240805
  Transmission Date: 20241017
  Serious: Yes (Hospitalization)
  Sender: MYLAN
  Company Number: US-MYLANLABS-2024M1033408

PATIENT
  Age: 53 Year
  Sex: Female
  Weight: 169 kg

DRUGS (36)
  1. CLOZAPINE [Suspect]
     Active Substance: CLOZAPINE
     Indication: Psychotic disorder
     Dosage: 100 MILLIGRAM, HS (BED TIME)
     Route: 048
  2. CLOZARIL [Suspect]
     Active Substance: CLOZAPINE
     Indication: Psychotic disorder
     Dosage: 25 MILLIGRAM, QD (DAILY, ONCE A DAY) STANDARD
     Route: 048
  3. CLOZARIL [Suspect]
     Active Substance: CLOZAPINE
     Dosage: 125 MILLIGRAM, BID (25 MILLIGRAM IN MORNING AND 100 MILLIGRAM AT BEDTIME)
     Route: 048
  4. ZYPREXA [Concomitant]
     Active Substance: OLANZAPINE
     Indication: Affective disorder
     Dosage: 5 MILLIGRAM, BID (TWICE A DAY)
     Route: 048
  5. VISTARIL [Concomitant]
     Active Substance: HYDROXYZINE PAMOATE
     Indication: Anxiety
     Dosage: 50 MILLIGRAM, HS (AT BED TIME)
     Route: 048
  6. URSO FORTE [Concomitant]
     Active Substance: URSODIOL
     Indication: Product used for unknown indication
     Dosage: 1 DOSAGE FORM, BID (TWICE A DAY)
     Route: 048
  7. TRILEPTAL [Concomitant]
     Active Substance: OXCARBAZEPINE
     Indication: Affective disorder
     Dosage: 600 MILLIGRAM, BID (TWICE A DAY)
     Route: 048
  8. CRESTOR [Concomitant]
     Active Substance: ROSUVASTATIN CALCIUM
     Indication: Hyperlipidaemia
     Dosage: 10 MILLIGRAM, HS (AT BEDTIME)
     Route: 048
  9. PRAZOSIN HYDROCHLORIDE [Concomitant]
     Active Substance: PRAZOSIN HYDROCHLORIDE
     Indication: Nightmare
     Dosage: 2 MILLIGRAM, HS (AT BEDTIME)
     Route: 048
  10. MIRALAX [Concomitant]
     Active Substance: POLYETHYLENE GLYCOL 3350
     Indication: Constipation
     Dosage: 17 GRAM, BID (TWICE A DAY)
     Route: 048
  11. MAGNESIUM OXIDE [Concomitant]
     Active Substance: MAGNESIUM OXIDE
     Indication: Product used for unknown indication
     Dosage: 1 DOSAGE FORM, QD (DAILY, ONCE A DAY)
     Route: 048
  12. MILK OF MAGNESIA [Concomitant]
     Active Substance: MAGNESIUM HYDROXIDE
     Indication: Constipation
     Dosage: 30 MILLILITER, PRN (3RD DAY AS REQUIRED)
     Route: 048
  13. ATIVAN [Concomitant]
     Active Substance: LORAZEPAM
     Indication: Anxiety
     Dosage: 1 MILLIGRAM, BID (TWICE A DAY)
     Route: 048
  14. SYNTHROID [Concomitant]
     Active Substance: LEVOTHYROXINE SODIUM
     Indication: Hypothyroidism
     Dosage: 1 DOSAGE FORM, QD (DAILY, ONCE A DAY)
     Route: 048
  15. LANTUS [Concomitant]
     Active Substance: INSULIN GLARGINE
     Indication: Diabetes mellitus
     Dosage: 24 UNIT, DAILYCUST, QD (ONCE A DAY), CUSTOMIZED 08:00 AM
     Route: 058
  16. KEPPRA [Concomitant]
     Active Substance: LEVETIRACETAM
     Indication: Seizure
     Dosage: 500 MILLIGRAM, BID (TWICE A DAY)
     Route: 048
  17. HUMALOG [Concomitant]
     Active Substance: INSULIN LISPRO
     Indication: Diabetes mellitus
     Dosage: ACBLD, BEFORE BREAKFAST, LUNCH, DINNER
     Route: 058
  18. HUMALOG [Concomitant]
     Active Substance: INSULIN LISPRO
     Dosage: 3 UNIT, ACBLD, BEFORE BREAKFAST, LUNCH, DINNER
     Route: 058
  19. DEXTROSE [Concomitant]
     Active Substance: DEXTROSE\DEXTROSE MONOHYDRATE
     Indication: Product used for unknown indication
     Dosage: 1 APP, PRN (AS NEEDED)
     Route: 048
  20. GLUCAGEN [Concomitant]
     Active Substance: GLUCAGON HYDROCHLORIDE
     Indication: Product used for unknown indication
     Dosage: 1 MILLIGRAM, PRN (AS NEEDED)
     Route: 065
  21. FLEET MINERAL OIL [Concomitant]
     Active Substance: MINERAL OIL
     Indication: Constipation
     Dosage: 1 APP, PRN (4TH DAY AS NEEDED)
     Route: 054
  22. EFFEXOR [Concomitant]
     Active Substance: VENLAFAXINE HYDROCHLORIDE
     Indication: Affective disorder
     Dosage: 75 MILLIGRAM, AFTER DINNER
     Route: 048
  23. EFFEXOR [Concomitant]
     Active Substance: VENLAFAXINE HYDROCHLORIDE
     Indication: Affective disorder
     Dosage: 150 MILLIGRAM, QD (DAILY, ONCE A DAY) STANDARD
     Route: 048
  24. PENLAC [Concomitant]
     Active Substance: CICLOPIROX
     Indication: Onychomycosis
     Dosage: 1 APP, QD, (DAILY, ONCE A DAY), STANDARD
     Route: 061
  25. BISACODYL [Concomitant]
     Active Substance: BISACODYL
     Indication: Constipation
     Dosage: 2 DOSAGE FORM, PRN 92ND DAY AS NEEDED)
     Route: 048
  26. BISACODYL [Concomitant]
     Active Substance: BISACODYL
     Indication: Constipation
     Dosage: 1 DOSAGE FORM, PRN (2ND DAY AS NEEDED)
     Route: 054
  27. ASPIRIN [Concomitant]
     Active Substance: ASPIRIN
     Indication: Cardiovascular event prophylaxis
     Dosage: 81 MILLIGRAM, QD (DAILY, ONCE A DAY)
     Route: 048
  28. AMBIEN [Concomitant]
     Active Substance: ZOLPIDEM TARTRATE
     Indication: Sleep disorder
     Dosage: 5 MILLIGRAM, HS (AT BEDTIME)
     Route: 048
  29. TYLENOL [Concomitant]
     Active Substance: ACETAMINOPHEN
     Indication: Pain
     Dosage: 1 DOSAGE FORM, TID (THRICE A DAY, AS NEEDED)
     Route: 048
  30. ABILIFY MAINTENA [Concomitant]
     Active Substance: ARIPIPRAZOLE
     Indication: Psychotic disorder
     Dosage: 300 MILLIGRAM, MONTHLY (EVERY 4 WEEKS)
     Route: 030
  31. LANTUS [Concomitant]
     Active Substance: INSULIN GLARGINE
     Indication: Diabetes mellitus
     Dosage: 10 UNIT, PCD, AFTER DINNER
     Route: 058
  32. LORATADINE [Concomitant]
     Active Substance: LORATADINE
     Dosage: 10 MILLIGRAM, AM (EVERY MORNING)
     Route: 048
  33. LEVOTHYROXINE [Concomitant]
     Active Substance: LEVOTHYROXINE\LEVOTHYROXINE SODIUM
     Dosage: 75 MICROGRAM, AM (EVERY MORNING)
     Route: 048
  34. SENOKOT [Concomitant]
     Active Substance: SENNOSIDES
     Dosage: 8.5 TO 50 MILLIGRAM, QD (EVERY DAY)
     Route: 048
  35. URSODIOL [Concomitant]
     Active Substance: URSODIOL
     Dosage: 900 MILLIGRAM, BID (600 MILLIGRAM AT MORNING AND 300 MILLIGRAM AT BEDTIME)
     Route: 048
  36. LANTUS SOLOSTAR [Concomitant]
     Active Substance: INSULIN GLARGINE
     Dosage: 20 UNITS, HS (AT BED TIME)
     Route: 058

REACTIONS (5)
  - Aggression [Unknown]
  - Self-destructive behaviour [Unknown]
  - Dizziness [Unknown]
  - Fall [Unknown]
  - Vomiting [Unknown]

NARRATIVE: CASE EVENT DATE: 20231010
